FAERS Safety Report 9093286 (Version 1)
Quarter: 2013Q1

REPORT INFORMATION
  Report Type: Report from Study
  Country: US (occurrence: US)
  Receive Date: 20130131
  Receipt Date: 20130131
  Transmission Date: 20140127
  Serious: Yes (Hospitalization)
  Sender: FDA-Public Use
  Company Number: US-ABBOTT-12P-163-1002035-00

PATIENT
  Sex: Male
  Weight: 88.53 kg

DRUGS (4)
  1. HUMIRA [Suspect]
     Indication: PSORIASIS
     Dates: start: 201011, end: 201111
  2. HUMIRA [Suspect]
     Dates: start: 201209
  3. PROTONIX [Concomitant]
     Indication: PRODUCT USED FOR UNKNOWN INDICATION
  4. CARISOPRODOL [Concomitant]
     Indication: HYPERTENSION

REACTIONS (5)
  - Road traffic accident [Recovering/Resolving]
  - Shoulder operation [Recovering/Resolving]
  - Decubitus ulcer [Recovered/Resolved]
  - Psoriasis [Recovering/Resolving]
  - Musculoskeletal pain [Recovered/Resolved]
